FAERS Safety Report 4970400-X (Version None)
Quarter: 2006Q2

REPORT INFORMATION
  Report Type: 
  Country: None (occurrence: None)
  Receive Date: 20060412
  Receipt Date: 20060310
  Transmission Date: 20061013
  Serious: Yes (Hospitalization, Disabling)
  Sender: FDA-Public Use
  Company Number: FR-GLAXOSMITHKLINE-B0415689A

PATIENT
  Sex: Female
  Weight: 3.2 kg

DRUGS (1)
  1. COMBIVIR [Suspect]
     Indication: HIV INFECTION
     Dates: start: 20020911, end: 20021022

REACTIONS (8)
  - CONGENITAL ANOMALY [None]
  - CONGENITAL MUSCULOSKELETAL ANOMALY [None]
  - CONVULSION [None]
  - DAWN PHENOMENON [None]
  - DRUG EXPOSURE DURING PREGNANCY [None]
  - DYSKINESIA [None]
  - HYPOTONIA [None]
  - TRISOMY 21 [None]
